FAERS Safety Report 5452647-1 (Version None)
Quarter: 2007Q3

REPORT INFORMATION
  Report Type: 
  Country: None (occurrence: None)
  Receive Date: 20070914
  Receipt Date: 20070910
  Transmission Date: 20080115
  Serious: Yes (Other)
  Sender: FDA-Public Use
  Company Number: IT-BRISTOL-MYERS SQUIBB COMPANY-13905179

PATIENT

DRUGS (6)
  1. IFOSFAMIDE [Suspect]
     Indication: SQUAMOUS CELL CARCINOMA
     Dosage: FIXED DOSES OF IFOSFAMIDE (1200MG/M2) WITH MESNA WAS ADMINISTERED ON DAYS 1 TO 4.
  2. CISPLATIN [Suspect]
     Indication: SQUAMOUS CELL CARCINOMA
  3. MESNA [Suspect]
     Indication: SQUAMOUS CELL CARCINOMA
  4. DOCETAXEL [Suspect]
     Indication: SQUAMOUS CELL CARCINOMA
     Dosage: DOSES OF DOCETAXEL RANGED FROM 40MG/M2 UP TO THE DOSE-LIMITING TOXICITY.
  5. CAPECITABINE [Concomitant]
     Indication: SQUAMOUS CELL CARCINOMA
  6. RADIATION THERAPY [Concomitant]
     Indication: SQUAMOUS CELL CARCINOMA

REACTIONS (2)
  - GASTROINTESTINAL TOXICITY [None]
  - HAEMATOTOXICITY [None]
